FAERS Safety Report 12211105 (Version 1)
Quarter: 2016Q1

REPORT INFORMATION
  Report Type: Spontaneous
  Country: TR (occurrence: TR)
  Receive Date: 20160325
  Receipt Date: 20160325
  Transmission Date: 20160526
  Serious: Yes (Hospitalization, Other)
  Sender: FDA-Public Use
  Company Number: TR-PFIZER INC-2016117364

PATIENT
  Age: 47 Year
  Sex: Female

DRUGS (4)
  1. LYRICA [Suspect]
     Active Substance: PREGABALIN
     Dosage: 75 MG, 2X/DAY
  2. LYRICA [Suspect]
     Active Substance: PREGABALIN
     Indication: HEMIPLEGIA
     Dosage: 150 MG, 2X/DAY
  3. APROL [Concomitant]
     Active Substance: NAPROXEN SODIUM
     Dosage: 10 MG, 1X/DAY
  4. ESMAX [Concomitant]
     Dosage: 10 MG, 1X/DAY

REACTIONS (4)
  - Meningioma [Not Recovered/Not Resolved]
  - Disease recurrence [Not Recovered/Not Resolved]
  - Product use issue [Unknown]
  - Diplopia [Not Recovered/Not Resolved]
